FAERS Safety Report 14035789 (Version 1)
Quarter: 2017Q4

REPORT INFORMATION
  Report Type: Report from Study
  Country: US (occurrence: US)
  Receive Date: 20171003
  Receipt Date: 20171003
  Transmission Date: 20180321
  Serious: No
  Sender: FDA-Public Use
  Company Number: US-AMGEN-USASL2017019001

PATIENT
  Sex: Male

DRUGS (3)
  1. XGEVA [Suspect]
     Active Substance: DENOSUMAB
     Indication: ERECTILE DYSFUNCTION
  2. XGEVA [Suspect]
     Active Substance: DENOSUMAB
     Indication: PROSTATIC SPECIFIC ANTIGEN INCREASED
  3. XGEVA [Suspect]
     Active Substance: DENOSUMAB
     Indication: PROSTATE CANCER
     Dosage: UNK
     Route: 065

REACTIONS (1)
  - Off label use [Unknown]
